FAERS Safety Report 8790891 (Version 1)
Quarter: 2012Q4

REPORT INFORMATION
  Report Type: Spontaneous
  Country: DE (occurrence: None)
  Receive Date: 20120910
  Receipt Date: 20120910
  Transmission Date: 20130627
  Serious: Yes (Other)
  Sender: FDA-Public Use
  Company Number: NGX_01202_2012

PATIENT
  Age: 71 Year
  Sex: Female
  Weight: 80 kg

DRUGS (4)
  1. QUTENZA [Suspect]
     Dosage: 1 DF [patch, applied to left arm] Topical
     Route: 061
     Dates: start: 20111108, end: 20111111
  2. L-THYROXIN [Concomitant]
  3. ATACAND [Concomitant]
  4. MAGNESIUM [Concomitant]

REACTIONS (2)
  - Application site pustules [None]
  - Drug ineffective [None]
